FAERS Safety Report 9406816 (Version 2)
Quarter: 2013Q3

REPORT INFORMATION
  Report Type: Spontaneous
  Country: BR (occurrence: BR)
  Receive Date: 20130718
  Receipt Date: 20130827
  Transmission Date: 20140515
  Serious: Yes (Other)
  Sender: FDA-Public Use
  Company Number: PHHY2013BR075618

PATIENT
  Age: 35 Year
  Sex: Male
  Weight: 91 kg

DRUGS (3)
  1. RITALINA [Suspect]
     Dosage: 10 MG, UNK
     Route: 048
  2. RITALINA [Suspect]
     Dosage: 5 MG, UNK
     Route: 048
  3. RIVOTRIL [Concomitant]
     Dosage: UNK UKN, UNK (AT NIGHT)

REACTIONS (4)
  - Tachycardia [Unknown]
  - Self esteem inflated [Unknown]
  - Therapeutic response unexpected [Unknown]
  - Agitation [Unknown]
